FAERS Safety Report 21739526 (Version 2)
Quarter: 2022Q4

REPORT INFORMATION
  Report Type: Spontaneous
  Country: US (occurrence: US)
  Receive Date: 20221216
  Receipt Date: 20221221
  Transmission Date: 20230112
  Serious: No
  Sender: FDA-Public Use
  Company Number: US-002147023-NVSC2022US289305

PATIENT
  Sex: Male

DRUGS (1)
  1. KETOCONAZOLE [Suspect]
     Active Substance: KETOCONAZOLE
     Indication: Product used for unknown indication
     Dosage: 2 %, BID (AS PRESCRIBED INSTEAD OF ONCE)
     Route: 065
     Dates: start: 20221012

REACTIONS (3)
  - Pain in extremity [Unknown]
  - Pain [Unknown]
  - Erythema [Unknown]
